FAERS Safety Report 6190941-X (Version None)
Quarter: 2009Q2

REPORT INFORMATION
  Report Type: 
  Country: None (occurrence: None)
  Receive Date: 20090514
  Receipt Date: 20090505
  Transmission Date: 20091009
  Serious: Yes (Hospitalization, Other)
  Sender: FDA-Public Use
  Company Number: US-MERCK-0811USA03170

PATIENT
  Age: 56 Year
  Sex: Female
  Weight: 71 kg

DRUGS (7)
  1. FOSAMAX [Suspect]
     Indication: OSTEOPOROSIS
     Route: 048
     Dates: start: 19950101, end: 20070101
  2. FOSAMAX [Suspect]
     Route: 048
     Dates: start: 19950101, end: 20070101
  3. FOSAMAX [Suspect]
     Indication: BONE DENSITY DECREASED
     Route: 048
     Dates: start: 19950101, end: 20070101
  4. FOSAMAX [Suspect]
     Route: 048
     Dates: start: 19950101, end: 20070101
  5. DEFEROXAMINE [Concomitant]
     Indication: BLOOD IRON
     Route: 065
     Dates: start: 19950101, end: 20070101
  6. FOSAMAX PLUS D [Suspect]
     Indication: OSTEOPOROSIS
     Route: 065
     Dates: start: 19950101, end: 20070101
  7. FOSAMAX PLUS D [Suspect]
     Indication: BONE DENSITY DECREASED
     Route: 065
     Dates: start: 19950101, end: 20070101

REACTIONS (13)
  - ABDOMINAL PAIN UPPER [None]
  - ABSCESS [None]
  - ADVERSE DRUG REACTION [None]
  - BLOOD CHOLESTEROL INCREASED [None]
  - BLOOD CREATININE INCREASED [None]
  - CHOLELITHIASIS [None]
  - HAEMORRHOIDS [None]
  - HYPERLIPIDAEMIA [None]
  - LIVER FUNCTION TEST ABNORMAL [None]
  - MUSCULOSKELETAL CHEST PAIN [None]
  - NEPHROLITHIASIS [None]
  - OSTEONECROSIS [None]
  - STOMATITIS [None]
